FAERS Safety Report 17523420 (Version 5)
Quarter: 2023Q1

REPORT INFORMATION
  Report Type: Spontaneous
  Country: US (occurrence: US)
  Receive Date: 20200310
  Receipt Date: 20230109
  Transmission Date: 20230418
  Serious: Yes (Other)
  Sender: FDA-Public Use
  Company Number: US-GILEAD-2020-0454098

PATIENT
  Age: 55 Year
  Sex: Male
  Weight: 72.562 kg

DRUGS (18)
  1. VIREAD [Suspect]
     Active Substance: TENOFOVIR DISOPROXIL FUMARATE
     Indication: HIV infection
     Dosage: UNK
     Route: 048
     Dates: start: 20090824, end: 20141119
  2. TRUVADA [Suspect]
     Active Substance: EMTRICITABINE\TENOFOVIR DISOPROXIL FUMARATE
     Indication: HIV infection
     Dosage: UNK
     Route: 048
     Dates: start: 20080911, end: 20090601
  3. ACETAMINOPHEN [Concomitant]
     Active Substance: ACETAMINOPHEN
  4. AMPICILLIN [Concomitant]
     Active Substance: AMPICILLIN
  5. ASPIRIN [Concomitant]
     Active Substance: ASPIRIN
  6. ATORVASTATIN [Concomitant]
     Active Substance: ATORVASTATIN
  7. LASIX [Concomitant]
     Active Substance: FUROSEMIDE
  8. PRAVASTATIN [Concomitant]
     Active Substance: PRAVASTATIN
  9. SIMVASTATIN [Concomitant]
     Active Substance: SIMVASTATIN
  10. COMBIVIR [Concomitant]
     Active Substance: LAMIVUDINE\ZIDOVUDINE
  11. INVIRASE [Concomitant]
     Active Substance: SAQUINAVIR MESYLATE
  12. ISENTRESS [Concomitant]
     Active Substance: RALTEGRAVIR POTASSIUM
  13. ISENTRESS [Concomitant]
     Active Substance: RALTEGRAVIR POTASSIUM
  14. JULUCA [Concomitant]
     Active Substance: DOLUTEGRAVIR SODIUM\RILPIVIRINE HYDROCHLORIDE
  15. LEXIVA [Concomitant]
     Active Substance: FOSAMPRENAVIR CALCIUM
  16. RETROVIR [Concomitant]
     Active Substance: ZIDOVUDINE
  17. SUSTIVA [Concomitant]
     Active Substance: EFAVIRENZ
  18. NORVIR [Concomitant]
     Active Substance: RITONAVIR

REACTIONS (6)
  - End stage renal disease [Not Recovered/Not Resolved]
  - Chronic kidney disease [Not Recovered/Not Resolved]
  - Renal failure [Unknown]
  - Economic problem [Unknown]
  - Emotional distress [Unknown]
  - Pain [Unknown]

NARRATIVE: CASE EVENT DATE: 20161220
